FAERS Safety Report 8991236 (Version 1)
Quarter: 2012Q4

REPORT INFORMATION
  Report Type: 
  Country: US (occurrence: US)
  Receive Date: 20121231
  Receipt Date: 20121231
  Transmission Date: 20130627
  Serious: Yes (Other)
  Sender: FDA-Public Use
  Company Number: US-AMGEN-USASP2012083492

PATIENT
  Age: 69 Year
  Sex: Male

DRUGS (4)
  1. ENBREL [Suspect]
     Indication: RHEUMATOID ARTHRITIS
     Dosage: UNK
  2. PREDNISONE [Concomitant]
     Dosage: UNK
  3. METHOTREXATE [Concomitant]
     Dosage: UNK
  4. HUMIRA [Concomitant]
     Dosage: UNK

REACTIONS (3)
  - Myocardial infarction [Unknown]
  - Infection [Unknown]
  - Rheumatoid arthritis [Unknown]
